FAERS Safety Report 11794555 (Version 1)
Quarter: 2015Q4

REPORT INFORMATION
  Report Type: Spontaneous
  Country: CN (occurrence: CN)
  Receive Date: 20151202
  Receipt Date: 20151202
  Transmission Date: 20160305
  Serious: Yes (Death)
  Sender: FDA-Public Use
  Company Number: CN-FRESENIUS KABI-FK201506258

PATIENT
  Age: 56 Year
  Sex: Male

DRUGS (4)
  1. METHYLPREDNISOLONE (MANUFACTURER UNKNOWN) [Suspect]
     Active Substance: METHYLPREDNISOLONE
     Indication: ORGANISING PNEUMONIA
     Route: 041
  2. PREDNISONE. [Suspect]
     Active Substance: PREDNISONE
     Indication: ORGANISING PNEUMONIA
     Route: 065
  3. METHYLPREDNISOLONE (MANUFACTURER UNKNOWN) [Suspect]
     Active Substance: METHYLPREDNISOLONE
     Route: 041
  4. METHYLPREDNISOLONE (MANUFACTURER UNKNOWN) [Suspect]
     Active Substance: METHYLPREDNISOLONE
     Route: 048

REACTIONS (5)
  - Hypoalbuminaemia [Fatal]
  - Metabolic disorder [Fatal]
  - Acute respiratory failure [Fatal]
  - Osteoporosis [Fatal]
  - Skin infection [Fatal]
